FAERS Safety Report 6089717-3 (Version None)
Quarter: 2009Q1

REPORT INFORMATION
  Report Type: 
  Country: None (occurrence: None)
  Receive Date: 20090220
  Receipt Date: 20090220
  Transmission Date: 20090719
  Serious: Yes (Other)
  Sender: FDA-Public Use
  Company Number: None

PATIENT
  Age: 49 Year
  Sex: Male
  Weight: 84.369 kg

DRUGS (2)
  1. VERSED [Suspect]
     Indication: COLONOSCOPY
     Dosage: 5 MG IV
     Route: 042
  2. DEMEROL [Suspect]
     Dosage: 125 MG IV
     Route: 042

REACTIONS (2)
  - MEMORY IMPAIRMENT [None]
  - MOTOR DYSFUNCTION [None]
